FAERS Safety Report 24941755 (Version 2)
Quarter: 2025Q3

REPORT INFORMATION
  Report Type: Spontaneous
  Country: EU (occurrence: EU)
  Receive Date: 20250207
  Receipt Date: 20250819
  Transmission Date: 20251021
  Serious: Yes (Hospitalization, Other)
  Sender: HIKMA
  Company Number: None

PATIENT
  Age: 66 Year
  Sex: Female
  Weight: 87 kg

DRUGS (3)
  1. FILGRASTIM [Suspect]
     Active Substance: FILGRASTIM
     Indication: Neutropenia
     Route: 058
     Dates: start: 20250101, end: 20250105
  2. EPIRUBICIN [Suspect]
     Active Substance: EPIRUBICIN
     Indication: Sarcoma
     Route: 042
     Dates: start: 20241227
  3. IFOSFAMIDE [Suspect]
     Active Substance: IFOSFAMIDE
     Indication: Sarcoma
     Route: 042
     Dates: start: 20241227

REACTIONS (3)
  - Face oedema [Recovered/Resolved]
  - Salivary hypersecretion [Recovered/Resolved]
  - Mucosal inflammation [Recovered/Resolved]

NARRATIVE: CASE EVENT DATE: 20250101
